FAERS Safety Report 20557299 (Version 1)
Quarter: 2022Q1

REPORT INFORMATION
  Report Type: Spontaneous
  Country: GB (occurrence: GB)
  Receive Date: 20220307
  Receipt Date: 20220307
  Transmission Date: 20220423
  Serious: Yes (Other)
  Sender: FDA-Public Use
  Company Number: GB-MHRA-MED-202202151604170170-D4MAJ

PATIENT
  Age: 58 Year
  Sex: Female
  Weight: 59 kg

DRUGS (1)
  1. LETROZOLE [Suspect]
     Active Substance: LETROZOLE
     Indication: Breast cancer
     Dosage: 25 MILLIGRAM, DAILY
     Route: 065

REACTIONS (1)
  - Pain [Recovering/Resolving]
